FAERS Safety Report 9301436 (Version 1)
Quarter: 2013Q2

REPORT INFORMATION
  Report Type: Report from Study
  Country: IN (occurrence: IN)
  Receive Date: 20130521
  Receipt Date: 20130521
  Transmission Date: 20140414
  Serious: Yes (Other)
  Sender: FDA-Public Use
  Company Number: IN-ROCHE-1227016

PATIENT
  Age: 57 Year
  Sex: Female

DRUGS (4)
  1. LUCENTIS [Suspect]
     Indication: AGE-RELATED MACULAR DEGENERATION
     Route: 050
     Dates: start: 20130108
  2. LUCENTIS [Suspect]
     Route: 050
     Dates: start: 20130416
  3. GALVUS [Concomitant]
  4. GLYCOMET-GP 2 [Concomitant]

REACTIONS (1)
  - Scotoma [Not Recovered/Not Resolved]
